FAERS Safety Report 15027769 (Version 3)
Quarter: 2018Q4

REPORT INFORMATION
  Report Type: Spontaneous
  Country: US (occurrence: US)
  Receive Date: 20180619
  Receipt Date: 20181112
  Transmission Date: 20190204
  Serious: Yes (Other)
  Sender: FDA-Public Use
  Company Number: US-PFIZER INC-2018245617

PATIENT
  Age: 76 Year
  Sex: Female

DRUGS (24)
  1. MAGNESIUM [Concomitant]
     Active Substance: MAGNESIUM
     Dosage: 500 MG, 1X/DAY
     Route: 048
  2. CALCIUM [Concomitant]
     Active Substance: CALCIUM
     Dosage: 1200 MG, 2X/DAY
     Route: 048
  3. SYMBICORT [Concomitant]
     Active Substance: BUDESONIDE\FORMOTEROL FUMARATE DIHYDRATE
     Dosage: UNK UNK, 2X/DAY, [BUDESONIDE 160 MCG]/[FORMOTEROL FUMARATE 4.5 MCG](2 PUFF(S) INHALED)
     Route: 055
  4. OXYGEN. [Concomitant]
     Active Substance: OXYGEN
     Dosage: UNK UNK, AS NEEDED, (OXYGEN 1.5)
  5. ZINC. [Concomitant]
     Active Substance: ZINC
     Dosage: 25 MG, 1X/DAY
     Route: 048
  6. MS CONTIN [Concomitant]
     Active Substance: MORPHINE SULFATE
     Dosage: 15 MG, AS NEEDED, (1 TAB(S) ORALLY BID; PRN)
     Route: 048
  7. GLUCOSAMINE [Concomitant]
     Active Substance: GLUCOSAMINE
     Dosage: 1000 MG, 2X/DAY
     Route: 048
  8. VITAMIN D [COLECALCIFEROL] [Concomitant]
     Dosage: 1 DF, DAILY, (1000)
  9. XELJANZ [Suspect]
     Active Substance: TOFACITINIB CITRATE
     Dosage: 5 MG, UNK
     Route: 048
     Dates: start: 20181101
  10. HYDROCODONE BITARTRATE AND ACETAMINOPHEN [Concomitant]
     Active Substance: ACETAMINOPHEN\HYDROCODONE BITARTRATE
     Indication: PAIN
     Dosage: 1 DF, AS NEEDED,(EVERY 4 HOURS PRN ) [HYDROCODONE 7.5 MG]/[APAP 325 MG]
     Route: 048
     Dates: start: 20161213
  11. GABAPENTIN. [Concomitant]
     Active Substance: GABAPENTIN
     Dosage: 300 MG, UNK(1-2 TABS ORALLY 1 QAM, 1 AFTERNOON, 2 QHS )
     Route: 048
  12. ALPRAZOLAM. [Concomitant]
     Active Substance: ALPRAZOLAM
     Dosage: 1 MG, AS NEEDED
     Route: 048
  13. XELJANZ [Suspect]
     Active Substance: TOFACITINIB CITRATE
     Dosage: 5 MG, 2X/DAY
     Route: 048
     Dates: start: 20180312, end: 20180614
  14. LIPITOR [Concomitant]
     Active Substance: ATORVASTATIN CALCIUM
     Dosage: 20 MG, 1X/DAY
     Route: 048
  15. DIAZEPAM. [Concomitant]
     Active Substance: DIAZEPAM
     Indication: HEADACHE
     Dosage: 5 MG, AS NEEDED, (1 TAB(S) ORALLY ONCE A DAY PRN )
     Route: 048
     Dates: start: 20161213
  16. COMBIVENT RESPIMAT [Concomitant]
     Active Substance: ALBUTEROL SULFATE\IPRATROPIUM BROMIDE
     Dosage: 1 DF, 2X/DAY, ([IPRATROPIUM BROMIDE 20 MCG]/[ALBUTEROL 100 MCG])
     Route: 055
  17. XELJANZ [Suspect]
     Active Substance: TOFACITINIB CITRATE
     Indication: RHEUMATOID ARTHRITIS
     Dosage: 5 MG, 2X/DAY
     Route: 048
     Dates: start: 201803
  18. ALDACTAZIDE [Concomitant]
     Active Substance: HYDROCHLOROTHIAZIDE\SPIRONOLACTONE
     Dosage: 25 MG, 1X/DAY, ([HYDROCHLOROTHIAZIDE 25 MG]/[SPIRONOLACTONE- 25 MG])
     Route: 048
  19. LOPRESSOR [Concomitant]
     Active Substance: METOPROLOL TARTRATE
     Dosage: 100 MG, 1X/DAY
     Route: 048
  20. ASPIR 81 [Concomitant]
     Dosage: 81 MG, 1X/DAY
     Route: 048
  21. COQ [Concomitant]
     Dosage: 1 DF, 1X/DAY
  22. LOSARTAN. [Concomitant]
     Active Substance: LOSARTAN
     Dosage: 25 MG, 1X/DAY
     Route: 048
  23. PREDNISONE. [Concomitant]
     Active Substance: PREDNISONE
     Dosage: 4 MG, 1X/DAY, (4 TAB(S) ORALLY ONCE A DAY)
     Route: 048
     Dates: start: 20180713
  24. OMEGA-3 FATTY ACIDS [Concomitant]
     Active Substance: OMEGA-3 FATTY ACIDS
     Dosage: 1 DF, 1X/DAY
     Route: 048

REACTIONS (3)
  - Condition aggravated [Not Recovered/Not Resolved]
  - Epistaxis [Unknown]
  - Depression [Not Recovered/Not Resolved]

NARRATIVE: CASE EVENT DATE: 20180531
